FAERS Safety Report 6504788-5 (Version None)
Quarter: 2009Q4

REPORT INFORMATION
  Report Type: 
  Country: None (occurrence: None)
  Receive Date: 20091218
  Receipt Date: 20091210
  Transmission Date: 20100525
  Serious: Yes (Other)
  Sender: FDA-Public Use
  Company Number: US-BAYER-200941167NA

PATIENT
  Age: 55 Year
  Sex: Female

DRUGS (12)
  1. BETASERON [Suspect]
     Indication: MULTIPLE SCLEROSIS
     Route: 058
     Dates: end: 20090901
  2. CHEMOTHERAPY [Concomitant]
  3. TYSABRI [Concomitant]
  4. NEXIUM [Concomitant]
  5. AMANTADINE [Concomitant]
  6. LEXAPRO [Concomitant]
  7. AROMASIN [Concomitant]
     Dates: start: 20070601
  8. BACLOFEN [Concomitant]
  9. CALCIUM SUPPLEMENT [Concomitant]
  10. MULTI-VITAMIN [Concomitant]
  11. AMBIEN [Concomitant]
  12. CELEBREX [Concomitant]

REACTIONS (2)
  - BREAST CANCER [None]
  - MULTIPLE SCLEROSIS [None]
